FAERS Safety Report 6417982-9 (Version None)
Quarter: 2009Q4

REPORT INFORMATION
  Report Type: 
  Country: None (occurrence: None)
  Receive Date: 20091028
  Receipt Date: 20091022
  Transmission Date: 20100525
  Serious: Yes (Hospitalization)
  Sender: FDA-Public Use
  Company Number: US-MERCK-0910USA02826

PATIENT
  Age: 66 Year
  Sex: Male

DRUGS (8)
  1. JANUVIA [Suspect]
     Indication: TYPE 2 DIABETES MELLITUS
     Route: 048
     Dates: start: 20080101, end: 20090928
  2. GLYBURIDE [Concomitant]
     Route: 065
  3. RAMIPRIL [Concomitant]
     Route: 065
  4. DIGOXIN [Concomitant]
     Route: 065
  5. CARVEDILOL [Concomitant]
     Route: 065
  6. WARFARIN [Concomitant]
     Route: 065
  7. CRESTOR [Concomitant]
     Route: 065
  8. ALLOPURINOL [Concomitant]
     Route: 065

REACTIONS (2)
  - FEELING ABNORMAL [None]
  - PANCREATITIS [None]
